FAERS Safety Report 8906312 (Version 1)
Quarter: 2012Q4

REPORT INFORMATION
  Report Type: Spontaneous
  Country: GB (occurrence: None)
  Receive Date: 20121107
  Receipt Date: 20121107
  Transmission Date: 20130627
  Serious: Yes (Hospitalization, Other)
  Sender: FDA-Public Use
  Company Number: AUR-APL-2012-04639

PATIENT
  Age: 44 Year
  Sex: Female

DRUGS (4)
  1. CITALOPRAM (CITALOPRAM) [Suspect]
     Indication: DEPRESSION
     Route: 048
     Dates: start: 20120731, end: 20120913
  2. CILEST (CILEST) [Concomitant]
  3. ERYTHROMYCIN (ERYTHROMYCIN) [Concomitant]
  4. PROPRANOLOL (PROPRANOLOL) [Concomitant]

REACTIONS (3)
  - Headache [None]
  - Cough [None]
  - Cerebral vasoconstriction [None]
